FAERS Safety Report 6840198-9 (Version None)
Quarter: 2010Q3

REPORT INFORMATION
  Report Type: 
  Country: None (occurrence: None)
  Receive Date: 20100713
  Receipt Date: 20100713
  Transmission Date: 20110219
  Serious: Yes (Hospitalization, Other)
  Sender: FDA-Public Use
  Company Number: None

PATIENT
  Sex: Female
  Weight: 90 kg

DRUGS (5)
  1. ZOMETA [Suspect]
     Indication: BREAST CANCER
     Dosage: 4MG MONTHLY IV
     Route: 042
     Dates: start: 20020101, end: 20070101
  2. AREDIA [Suspect]
     Indication: METASTASIS
     Dosage: ? ? IV
     Route: 042
     Dates: start: 20000101, end: 20020101
  3. TAXOTERE - NAVELBINE [Concomitant]
  4. ARIMIDEX/FEMARA [Concomitant]
  5. FASLODEX [Concomitant]

REACTIONS (6)
  - FALL [None]
  - FEMUR FRACTURE [None]
  - MOUTH ULCERATION [None]
  - OSTEONECROSIS OF JAW [None]
  - TOOTH DISORDER [None]
  - TOOTH FRACTURE [None]
